FAERS Safety Report 15326363 (Version 2)
Quarter: 2018Q3

REPORT INFORMATION
  Report Type: Spontaneous
  Country: DE (occurrence: DE)
  Receive Date: 20180828
  Receipt Date: 20180926
  Transmission Date: 20181010
  Serious: Yes (Hospitalization)
  Sender: FDA-Public Use
  Company Number: DE-TEVA-2018-DE-946900

PATIENT
  Age: 74 Year
  Sex: Female

DRUGS (22)
  1. NOVALGIN [Concomitant]
     Indication: TUMOUR PAIN
     Dosage: 500 MILLIGRAM DAILY; 500MG
     Route: 048
  2. PANTOZOL [Concomitant]
     Active Substance: PANTOPRAZOLE SODIUM
     Indication: GASTRITIS PROPHYLAXIS
     Dosage: 20 MILLIGRAM DAILY; 20MG
     Route: 048
  3. AMLODIPINE [Concomitant]
     Active Substance: AMLODIPINE BESYLATE
     Indication: HYPERTENSION
     Dosage: .3333 MILLIGRAM
     Route: 048
     Dates: start: 20161020
  4. TOREM [Concomitant]
     Active Substance: TORSEMIDE
     Dosage: 10 MILLIGRAM DAILY; 10 MILLIGRAM
     Route: 048
     Dates: start: 20161020
  5. DEXAMETHASONE ORAL [Suspect]
     Active Substance: DEXAMETHASONE
     Indication: PLASMA CELL MYELOMA
     Dosage: 40 MILLIGRAM DAILY;
     Route: 048
     Dates: start: 20160907, end: 20161012
  6. METOPROLOL SUCCINATE. [Concomitant]
     Active Substance: METOPROLOL SUCCINATE
     Indication: HYPERTENSION
     Route: 048
  7. BELOC?ZOK COMP [Concomitant]
     Active Substance: HYDROCHLOROTHIAZIDE\METOPROLOL SUCCINATE
     Indication: HYPERTENSION
     Dosage: 95MG
     Route: 048
  8. MOXONIDIN [Concomitant]
     Active Substance: MOXONIDINE
     Dosage: .6 MILLIGRAM DAILY; DAILY DOSE: 0.6 MG MILLIGRAM(S) EVERY DAY
     Route: 048
     Dates: start: 20161020
  9. RAMIPRIL. [Concomitant]
     Active Substance: RAMIPRIL
     Indication: HYPERTENSION
     Dosage: .1667 MILLIGRAM
     Route: 048
     Dates: start: 20161020
  10. PENTAMIDINE [Concomitant]
     Active Substance: PENTAMIDINE
     Indication: INFECTION PROPHYLAXIS
     Dosage: 300MG
     Route: 065
  11. PANTOZOL [Concomitant]
     Active Substance: PANTOPRAZOLE SODIUM
     Dosage: 40 MILLIGRAM DAILY; 40 MILLIGRAM
     Route: 048
     Dates: start: 20161020
  12. DARATUMUMAB [Suspect]
     Active Substance: DARATUMUMAB
     Indication: PLASMA CELL MYELOMA
     Route: 041
     Dates: start: 20160907
  13. ASPIRIN. [Concomitant]
     Active Substance: ASPIRIN
     Indication: THROMBOSIS PROPHYLAXIS
     Dosage: 100 MILLIGRAM DAILY; 100MG
     Route: 048
  14. URAPIDIL [Concomitant]
     Active Substance: URAPIDIL
     Indication: HYPERTENSION
     Dosage: 90MG
     Route: 048
  15. REVLIMID [Suspect]
     Active Substance: LENALIDOMIDE
     Indication: PLASMA CELL MYELOMA
     Dosage: 25 MILLIGRAM DAILY; 25MG
     Route: 048
     Dates: start: 20160907
  16. TOREM [Concomitant]
     Active Substance: TORSEMIDE
     Indication: DIURETIC THERAPY
     Dosage: 5 MILLIGRAM DAILY; 5MG
     Route: 048
  17. ADALAT [Concomitant]
     Active Substance: NIFEDIPINE
     Indication: HYPERTENSION
     Dosage: 20 MILLIGRAM DAILY; 20MG
     Route: 048
  18. DUROGESIC [Concomitant]
     Active Substance: FENTANYL
     Indication: TUMOUR PAIN
     Dosage: 50UL
     Route: 061
     Dates: start: 20161116
  19. MOXONIDIN [Concomitant]
     Active Substance: MOXONIDINE
     Indication: HYPERTENSION
     Dosage: .2 MILLIGRAM DAILY;
     Route: 048
  20. CIPROFLOXACIN. [Concomitant]
     Active Substance: CIPROFLOXACIN
     Indication: INFECTION PROPHYLAXIS
     Dosage: 100 MILLIGRAM DAILY; 100MG
     Route: 048
     Dates: start: 20160922
  21. DUROGESIC [Concomitant]
     Active Substance: FENTANYL
     Dosage: 50UL
     Route: 061
     Dates: start: 201609
  22. GABAPENTIN. [Concomitant]
     Active Substance: GABAPENTIN
     Indication: TUMOUR PAIN
     Dosage: 300 MILLIGRAM DAILY; 300MG
     Route: 048

REACTIONS (2)
  - Decreased appetite [Recovered/Resolved]
  - Hypertension [Recovered/Resolved]

NARRATIVE: CASE EVENT DATE: 201610
